FAERS Safety Report 20551730 (Version 2)
Quarter: 2022Q2

REPORT INFORMATION
  Report Type: Spontaneous
  Country: US (occurrence: US)
  Receive Date: 20220304
  Receipt Date: 20220412
  Transmission Date: 20220720
  Serious: Yes (Other)
  Sender: FDA-Public Use
  Company Number: US-PFIZER INC-202200309111

PATIENT
  Age: 43 Year
  Sex: Female
  Weight: 64.6 kg

DRUGS (3)
  1. IBRANCE [Suspect]
     Active Substance: PALBOCICLIB
     Indication: Breast cancer metastatic
     Dosage: 125 MG, CYCLIC (1 TABLET FOR 21 DAYS, AND OFF 7 DAYS)
     Route: 048
     Dates: start: 20220216
  2. ANASTROZOLE [Concomitant]
     Active Substance: ANASTROZOLE
     Dosage: 1 MG
  3. DIAZEPAM [Concomitant]
     Active Substance: DIAZEPAM
     Indication: Cancer pain
     Dosage: UNK

REACTIONS (2)
  - Dry mouth [Not Recovered/Not Resolved]
  - Dry eye [Not Recovered/Not Resolved]

NARRATIVE: CASE EVENT DATE: 20220201
